FAERS Safety Report 14199021 (Version 1)
Quarter: 2017Q4

REPORT INFORMATION
  Report Type: Spontaneous
  Country: US (occurrence: US)
  Receive Date: 20171117
  Receipt Date: 20171117
  Transmission Date: 20180321
  Serious: No
  Sender: FDA-Public Use
  Company Number: US-009507513-1710USA012247

PATIENT
  Age: 65 Year
  Sex: Male

DRUGS (3)
  1. DULERA [Suspect]
     Active Substance: FORMOTEROL FUMARATE DIHYDRATE\MOMETASONE FUROATE
     Indication: ASTHMA
     Dosage: 3 PUFFS A DAY
     Route: 055
  2. DULERA [Suspect]
     Active Substance: FORMOTEROL FUMARATE DIHYDRATE\MOMETASONE FUROATE
     Indication: HYPERSENSITIVITY
  3. SYMBICORT [Concomitant]
     Active Substance: BUDESONIDE\FORMOTEROL FUMARATE DIHYDRATE

REACTIONS (9)
  - Drug ineffective [Unknown]
  - Intentional product use issue [Unknown]
  - Drug prescribing error [Unknown]
  - Influenza [Recovering/Resolving]
  - Nasopharyngitis [Recovering/Resolving]
  - Circumstance or information capable of leading to medication error [Unknown]
  - Product use in unapproved indication [Unknown]
  - Asthma [Not Recovered/Not Resolved]
  - Product container issue [Unknown]

NARRATIVE: CASE EVENT DATE: 201710
